FAERS Safety Report 7108592-9 (Version None)
Quarter: 2010Q4

REPORT INFORMATION
  Report Type: 
  Country: None (occurrence: None)
  Receive Date: 20101115
  Receipt Date: 20101115
  Transmission Date: 20110411
  Serious: Yes (Life-Threatening, Hospitalization, Disabling, Other)
  Sender: FDA-Public Use
  Company Number: None

PATIENT
  Age: 55 Year
  Sex: Female
  Weight: 47.6277 kg

DRUGS (1)
  1. ACIPHEX [Suspect]
     Indication: ULCER
     Dosage: 20MG 1 A DAY
     Dates: start: 20060101, end: 20100701

REACTIONS (8)
  - ASTHENIA [None]
  - BLADDER PAIN [None]
  - CYSTITIS [None]
  - IMPAIRED GASTRIC EMPTYING [None]
  - INSOMNIA [None]
  - MYALGIA [None]
  - RENAL PAIN [None]
  - WEIGHT DECREASED [None]
